FAERS Safety Report 12059118 (Version 1)
Quarter: 2016Q1

REPORT INFORMATION
  Report Type: Report from Study
  Country: FR (occurrence: FR)
  Receive Date: 20160210
  Receipt Date: 20160210
  Transmission Date: 20160526
  Serious: Yes (Death, Other)
  Sender: FDA-Public Use
  Company Number: FR-ROCHE-1708020

PATIENT
  Sex: Female
  Weight: 58 kg

DRUGS (7)
  1. PLAQUENIL [Concomitant]
     Active Substance: HYDROXYCHLOROQUINE SULFATE
  2. TOCILIZUMAB [Suspect]
     Active Substance: TOCILIZUMAB
     Route: 041
     Dates: start: 20140215, end: 20140312
  3. METHOTREXATE [Concomitant]
     Active Substance: METHOTREXATE
  4. MOBIC [Concomitant]
     Active Substance: MELOXICAM
  5. AVLOCARDYL [Concomitant]
     Active Substance: PROPRANOLOL HYDROCHLORIDE
  6. ZOMIGORO [Concomitant]
     Active Substance: ZOLMITRIPTAN
  7. TOCILIZUMAB [Suspect]
     Active Substance: TOCILIZUMAB
     Indication: RHEUMATOID ARTHRITIS
     Route: 041
     Dates: start: 20130927, end: 20140118

REACTIONS (1)
  - Aphthous ulcer [Recovered/Resolved]

NARRATIVE: CASE EVENT DATE: 20140128
